FAERS Safety Report 9231092 (Version 1)
Quarter: 2013Q2

REPORT INFORMATION
  Report Type: Spontaneous
  Country: TW (occurrence: TW)
  Receive Date: 20130415
  Receipt Date: 20130415
  Transmission Date: 20140414
  Serious: Yes (Other)
  Sender: FDA-Public Use
  Company Number: TW-ROCHE-1209425

PATIENT
  Age: 14 Year
  Sex: Male

DRUGS (9)
  1. CLONAZEPAM [Suspect]
     Indication: EPILEPSY
     Route: 048
  2. CARBAMAZEPINE [Suspect]
     Indication: EPILEPSY
     Route: 048
  3. MIDAZOLAM [Suspect]
     Indication: CONVULSION
     Dosage: WAS GRADUALLY INCREASED TO 20 UG/KG/MIN
     Route: 065
  4. PHENOBARBITAL [Concomitant]
     Indication: CONVULSION
     Route: 048
  5. PHENYTOIN [Concomitant]
     Indication: CONVULSION
     Route: 042
  6. CLONAZEPAM [Concomitant]
     Indication: CONVULSION
     Route: 042
  7. CARBAMAZEPINE [Concomitant]
     Indication: CONVULSION
     Route: 042
  8. TOPIRAMATE [Concomitant]
     Indication: CONVULSION
     Route: 048
  9. LEVETIRACETAM [Concomitant]
     Indication: CONVULSION
     Route: 048

REACTIONS (4)
  - Drug reaction with eosinophilia and systemic symptoms [Recovered/Resolved]
  - Myocarditis [Recovered/Resolved]
  - Bradycardia [Unknown]
  - Hypotension [Unknown]
